FAERS Safety Report 17950863 (Version 1)
Quarter: 2020Q2

REPORT INFORMATION
  Report Type: Spontaneous
  Country: FR (occurrence: FR)
  Receive Date: 20200626
  Receipt Date: 20200626
  Transmission Date: 20200714
  Serious: Yes (Congenital Anomaly, Other)
  Sender: FDA-Public Use
  Company Number: FR-ELI_LILLY_AND_COMPANY-FR202006006728

PATIENT
  Sex: Female
  Weight: 3.59 kg

DRUGS (1)
  1. ZYPREXA [Suspect]
     Active Substance: OLANZAPINE
     Indication: AFFECTIVE DISORDER
     Dosage: 2.5 MG, DAILY
     Route: 064
     Dates: start: 20190811, end: 20200507

REACTIONS (2)
  - Foetal exposure during pregnancy [Unknown]
  - Congenital intestinal malformation [Not Recovered/Not Resolved]

NARRATIVE: CASE EVENT DATE: 20200507
